FAERS Safety Report 11166822 (Version 1)
Quarter: 2015Q2

REPORT INFORMATION
  Report Type: Spontaneous
  Country: US (occurrence: US)
  Receive Date: 20150605
  Receipt Date: 20150605
  Transmission Date: 20150821
  Serious: No
  Sender: FDA-Public Use
  Company Number: US-JNJFOC-20150512653

PATIENT
  Age: 50 Year
  Sex: Female
  Weight: 57.15 kg

DRUGS (2)
  1. RISPERDAL CONSTA [Suspect]
     Active Substance: RISPERIDONE
     Indication: SCHIZOAFFECTIVE DISORDER
     Dosage: DOSE STRENGTH WAS GIVEN AS 37.5 MG,FREQUENCY WAS NOT GIVEN.
     Route: 030
     Dates: start: 2005
  2. OXCARBAZEPINE. [Concomitant]
     Active Substance: OXCARBAZEPINE
     Indication: SEIZURE
     Route: 048
     Dates: start: 2005

REACTIONS (3)
  - Nervous system disorder [Not Recovered/Not Resolved]
  - Drug dose omission [Unknown]
  - Vision blurred [Not Recovered/Not Resolved]

NARRATIVE: CASE EVENT DATE: 201501
